FAERS Safety Report 8157376-1 (Version None)
Quarter: 2012Q1

REPORT INFORMATION
  Report Type: 
  Country: None (occurrence: None)
  Receive Date: 20120217
  Receipt Date: 20120125
  Transmission Date: 20120608
  Serious: Yes (Hospitalization)
  Sender: FDA-Public Use
  Company Number: 001103983

PATIENT
  Sex: Female

DRUGS (1)
  1. PROACTIV GENERAL [Suspect]
     Indication: ACNE
     Dosage: DAILY

REACTIONS (2)
  - SKIN BURNING SENSATION [None]
  - DRY SKIN [None]
